FAERS Safety Report 5931164-6 (Version None)
Quarter: 2008Q4

REPORT INFORMATION
  Report Type: 
  Country: None (occurrence: None)
  Receive Date: 20081027
  Receipt Date: 20081017
  Transmission Date: 20090506
  Serious: Yes (Hospitalization)
  Sender: FDA-Public Use
  Company Number: PHEH2008US09358

PATIENT
  Age: 88 Year
  Sex: Female
  Weight: 68.027 kg

DRUGS (4)
  1. RECLAST [Suspect]
     Indication: OSTEOPOROSIS
     Dosage: 5 MG, ONCE/SINGLE
     Dates: start: 20081016, end: 20081016
  2. CELEBREX [Concomitant]
  3. VERAPAMIL [Concomitant]
  4. XANAX [Concomitant]

REACTIONS (3)
  - CHEST PAIN [None]
  - LUNG INFILTRATION [None]
  - PYREXIA [None]
